FAERS Safety Report 4554367-4 (Version None)
Quarter: 2005Q1

REPORT INFORMATION
  Report Type: 
  Country: None (occurrence: None)
  Receive Date: 20050118
  Receipt Date: 20041222
  Transmission Date: 20050727
  Serious: Yes (Death, Hospitalization)
  Sender: FDA-Public Use
  Company Number: PHBS2004CA17183

PATIENT
  Age: 74 Year
  Sex: Male

DRUGS (1)
  1. SANDOSTATIN [Suspect]
     Indication: POST PROCEDURAL DIARRHOEA
     Dosage: 100 MG, ONCE/SINGLE
     Route: 065
     Dates: start: 20041210, end: 20041210

REACTIONS (7)
  - CONCOMITANT DISEASE PROGRESSION [None]
  - DEHYDRATION [None]
  - HYPOTENSION [None]
  - INTESTINAL ISCHAEMIA [None]
  - MUCOSAL INFLAMMATION [None]
  - RECTOSIGMOID CANCER [None]
  - RENAL FAILURE [None]
